FAERS Safety Report 4423285-4 (Version None)
Quarter: 2004Q3

REPORT INFORMATION
  Report Type: 
  Country: None (occurrence: None)
  Receive Date: 20040811
  Receipt Date: 20040719
  Transmission Date: 20050211
  Serious: Yes (Hospitalization, Other)
  Sender: FDA-Public Use
  Company Number: US-GLAXOSMITHKLINE-A0518805A

PATIENT
  Age: 30 Year
  Sex: Female
  Weight: 48.2 kg

DRUGS (2)
  1. PAXIL [Suspect]
     Indication: DEPRESSION
     Dosage: 20MG PER DAY
     Route: 048
     Dates: start: 20031008, end: 20040707
  2. THYROID MEDICATION [Concomitant]

REACTIONS (4)
  - AURA [None]
  - CONVULSION [None]
  - LOSS OF CONSCIOUSNESS [None]
  - SOMNOLENCE [None]
